FAERS Safety Report 19026849 (Version 2)
Quarter: 2021Q1

REPORT INFORMATION
  Report Type: Spontaneous
  Country: US (occurrence: US)
  Receive Date: 20210318
  Receipt Date: 20210319
  Transmission Date: 20210420
  Serious: Yes (Other)
  Sender: FDA-Public Use
  Company Number: US-MYLANLABS-2021M1013953

PATIENT
  Sex: Female

DRUGS (1)
  1. SEMGLEE [Suspect]
     Active Substance: INSULIN GLARGINE
     Indication: DIABETES MELLITUS
     Dosage: DAILY 15 UNITS
     Route: 058

REACTIONS (3)
  - Device issue [Recovered/Resolved]
  - Stress [Unknown]
  - Drug ineffective [Recovered/Resolved]
